FAERS Safety Report 5808485-0 (Version None)
Quarter: 2008Q3

REPORT INFORMATION
  Report Type: 
  Country: None (occurrence: None)
  Receive Date: 20080710
  Receipt Date: 20080710
  Transmission Date: 20090109
  Serious: Yes (Disabling)
  Sender: FDA-Public Use
  Company Number: None

PATIENT
  Age: 55 Year
  Sex: Female
  Weight: 96.1626 kg

DRUGS (2)
  1. LEVAQUIN [Suspect]
     Indication: BRONCHITIS
     Dosage: 1 QD PO
     Route: 048
     Dates: start: 20080702, end: 20080707
  2. LEVAQUIN [Suspect]
     Indication: PNEUMONIA
     Dosage: 1 QD PO
     Route: 048
     Dates: start: 20080702, end: 20080707

REACTIONS (3)
  - GAIT DISTURBANCE [None]
  - PAIN IN EXTREMITY [None]
  - TENDON PAIN [None]
